FAERS Safety Report 7598545-9 (Version None)
Quarter: 2011Q3

REPORT INFORMATION
  Report Type: 
  Country: None (occurrence: None)
  Receive Date: 20110708
  Receipt Date: 20110628
  Transmission Date: 20111222
  Serious: Yes (Hospitalization, Other)
  Sender: FDA-Public Use
  Company Number: GB-ELI_LILLY_AND_COMPANY-GB201107001658

PATIENT
  Sex: Female

DRUGS (3)
  1. HUMALOG MIX 75/25 [Suspect]
     Dosage: UNK, UNKNOWN
  2. HUMALOG [Suspect]
     Dosage: 19 U, UNK
  3. HUMALOG [Suspect]
     Dosage: 18 U, UNK

REACTIONS (2)
  - HOSPITALISATION [None]
  - WRONG DRUG ADMINISTERED [None]
